FAERS Safety Report 9594415 (Version 1)
Quarter: 2013Q4

REPORT INFORMATION
  Report Type: Spontaneous
  Country: IT (occurrence: IT)
  Receive Date: 20131004
  Receipt Date: 20131004
  Transmission Date: 20140711
  Serious: Yes (Other)
  Sender: FDA-Public Use
  Company Number: IT-ASTRAZENECA-2013SE72607

PATIENT
  Age: 29354 Day
  Sex: Male

DRUGS (14)
  1. AXAGON [Suspect]
     Route: 048
  2. AXAGON [Suspect]
     Route: 048
     Dates: start: 20130919, end: 20130919
  3. TRIATEC [Suspect]
     Route: 048
  4. TRIATEC [Suspect]
     Route: 048
     Dates: start: 20130919, end: 20130919
  5. TOTALIP [Suspect]
     Route: 048
  6. TOTALIP [Suspect]
     Route: 048
     Dates: start: 20130919, end: 20130919
  7. EUTIROX [Suspect]
     Route: 048
  8. EUTIROX [Suspect]
     Route: 048
     Dates: start: 20130919, end: 20130919
  9. LASIX [Suspect]
     Route: 048
  10. LASIX [Suspect]
     Route: 048
     Dates: start: 20130919, end: 20130919
  11. TOLEP [Suspect]
     Route: 048
  12. TOLEP [Suspect]
     Route: 048
     Dates: start: 20130919, end: 20130919
  13. TIKLID [Concomitant]
     Route: 048
  14. CONGESCOR [Concomitant]
     Route: 048

REACTIONS (5)
  - Fall [Recovering/Resolving]
  - Injury [Recovering/Resolving]
  - Face injury [Unknown]
  - Limb injury [Unknown]
  - Self injurious behaviour [Unknown]
